FAERS Safety Report 15604614 (Version 4)
Quarter: 2019Q3

REPORT INFORMATION
  Report Type: Spontaneous
  Country: SK (occurrence: SK)
  Receive Date: 20181110
  Receipt Date: 20190731
  Transmission Date: 20191004
  Serious: Yes (Hospitalization)
  Sender: FDA-Public Use
  Company Number: SK-CELLTRION INC.-2018SK023193

PATIENT

DRUGS (2)
  1. INFLIXIMAB (UNKNOWN) [Suspect]
     Active Substance: INFLIXIMAB
     Indication: COLITIS ULCERATIVE
     Dosage: UNK
     Route: 042
     Dates: start: 201506, end: 201510
  2. PYRAZINAMIDE. [Suspect]
     Active Substance: PYRAZINAMIDE
     Indication: PRODUCT USED FOR UNKNOWN INDICATION
     Route: 065

REACTIONS (36)
  - Disseminated tuberculosis [Recovering/Resolving]
  - Confusional state [Unknown]
  - Bladder dilatation [Unknown]
  - Pyelonephritis [Unknown]
  - Abdominal pain [Unknown]
  - Liver function test increased [Unknown]
  - Decreased appetite [Unknown]
  - Microcytic anaemia [Unknown]
  - Acute kidney injury [Unknown]
  - Hyperhidrosis [Unknown]
  - Hypochromic anaemia [Unknown]
  - Lymphadenopathy [Unknown]
  - Meningitis tuberculous [Recovering/Resolving]
  - Vertigo [Unknown]
  - Paraparesis [Unknown]
  - Neutrophilia [Unknown]
  - Weight decreased [Unknown]
  - Inflammatory marker increased [Unknown]
  - Anuria [Unknown]
  - Polyuria [Unknown]
  - Dyspnoea [Unknown]
  - Hyponatraemia [Unknown]
  - Pyrexia [Unknown]
  - Lymphoproliferative disorder [Unknown]
  - Hydronephrosis [Unknown]
  - Hepatic enzyme increased [Unknown]
  - Disorientation [Unknown]
  - Ascites [Unknown]
  - Urinary retention [Unknown]
  - Myelitis [Unknown]
  - Arachnoiditis [Unknown]
  - Cough [Unknown]
  - Ataxia [Unknown]
  - Arachnoid cyst [Unknown]
  - Tracheobronchitis [Unknown]
  - Pneumonia [Unknown]

NARRATIVE: CASE EVENT DATE: 2015
